FAERS Safety Report 6120279-8 (Version None)
Quarter: 2009Q1

REPORT INFORMATION
  Report Type: 
  Country: None (occurrence: None)
  Receive Date: 20090312
  Receipt Date: 20090227
  Transmission Date: 20090719
  Serious: Yes (Hospitalization)
  Sender: FDA-Public Use
  Company Number: 09US000003

PATIENT
  Age: 74 Year
  Sex: Male

DRUGS (7)
  1. APAP COUGH DAYTIME COOL LIQ 698 (PARACETAMOL) [Suspect]
     Indication: NASOPHARYNGITIS
     Dosage: 30 ML, TID, ORAL
     Route: 048
     Dates: start: 20090130
  2. DIGOXIN [Concomitant]
  3. JANUVIA [Concomitant]
  4. DILTIAZEM (DILTIAZEM HYDOCHLORIDE) [Concomitant]
  5. COUMADIN [Concomitant]
  6. SIMVASTATIN [Concomitant]
  7. COZAAR [Concomitant]

REACTIONS (3)
  - BLOOD PRESSURE INCREASED [None]
  - CARDIAC FAILURE CONGESTIVE [None]
  - DYSPNOEA [None]
